FAERS Safety Report 14819153 (Version 1)
Quarter: 2020Q3

REPORT INFORMATION
  Report Type: Report from Study
  Country: US (occurrence: US)
  Receive Date: 20180427
  Receipt Date: 20180427
  Transmission Date: 20201105
  Serious: Yes (Other)
  Sender: FDA-Public Use
  Company Number: US-CIPLA (EU) LIMITED-2018US16729

PATIENT

DRUGS (6)
  1. CARBOPLATIN. [Suspect]
     Active Substance: CARBOPLATIN
     Indication: METASTATIC NEOPLASM
  2. DULIGOTUZUMAB. [Suspect]
     Active Substance: DULIGOTUZUMAB
     Indication: SQUAMOUS CELL CARCINOMA OF HEAD AND NECK
     Dosage: 1650 MG,ON DAY 1 EVERY 3 WEEKS
     Route: 042
  3. DULIGOTUZUMAB. [Suspect]
     Active Substance: DULIGOTUZUMAB
     Indication: METASTATIC NEOPLASM
  4. CARBOPLATIN. [Suspect]
     Active Substance: CARBOPLATIN
     Indication: SQUAMOUS CELL CARCINOMA OF HEAD AND NECK
     Dosage: 6 MG/ML/MIN, ON DAY 1 EVERY 3 WEEKS
     Route: 042
  5. PACLITAXEL. [Suspect]
     Active Substance: PACLITAXEL
     Indication: METASTATIC NEOPLASM
  6. PACLITAXEL. [Suspect]
     Active Substance: PACLITAXEL
     Indication: SQUAMOUS CELL CARCINOMA OF HEAD AND NECK
     Dosage: 200 MG/M2, UNK, ON DAY 1 EVERY 3 WEEKS
     Route: 042

REACTIONS (1)
  - Malignant neoplasm progression [Unknown]
